FAERS Safety Report 4672979-4 (Version None)
Quarter: 2005Q2

REPORT INFORMATION
  Report Type: 
  Country: None (occurrence: None)
  Receive Date: 20050524
  Receipt Date: 20050217
  Transmission Date: 20051028
  Serious: Yes (Death)
  Sender: FDA-Public Use
  Company Number: 2005SI000629

PATIENT
  Age: 71 Year
  Sex: Female
  Weight: 74.8435 kg

DRUGS (19)
  1. CLOZAPINE [Suspect]
     Indication: SCHIZOPHRENIA
     Dosage: 50 MG QAM PO; 250 MG HS PO
     Route: 048
     Dates: start: 20041113, end: 20050207
  2. ALBUTEROL SULFATE HFA [Concomitant]
  3. LORAZEPAM [Concomitant]
  4. PARACETAMOL [Concomitant]
  5. PROMETHAZINE HCL [Concomitant]
  6. MAGNESIUM HYDROXIDE TAB [Concomitant]
  7. FOLIC ACID [Concomitant]
  8. PYRIDOXINE HYDROCHLORIDE/THIAMINE HYDROCHLORIDE/RIBOFLAVIN/NICOTINAMID [Concomitant]
  9. FERROUS SULFATE TAB [Concomitant]
  10. MOMETASONE FUROATE [Concomitant]
  11. ESOMEPRAZOLE [Concomitant]
  12. LORATADINE [Concomitant]
  13. METOCLOPRAMIDE HYDROCHLORIDE [Concomitant]
  14. HYOSCINE HBR HYT [Concomitant]
  15. MORPHINE SULFATE [Concomitant]
  16. BISACODYL [Concomitant]
  17. SODIUM PHOSPHATE DIBASIC/SODIUM PHOSPHATE [Concomitant]
  18. PARACETAMOL [Concomitant]
  19. HYOCYAMINE SULFATE [Concomitant]

REACTIONS (1)
  - SELF INJURIOUS BEHAVIOUR [None]
